FAERS Safety Report 17307517 (Version 2)
Quarter: 2020Q1

REPORT INFORMATION
  Report Type: Spontaneous
  Country: CZ (occurrence: CZ)
  Receive Date: 20200123
  Receipt Date: 20200208
  Transmission Date: 20200409
  Serious: Yes (Other)
  Sender: FDA-Public Use
  Company Number: NVSC2020CZ013942

PATIENT
  Sex: Male

DRUGS (1)
  1. GILENYA [Suspect]
     Active Substance: FINGOLIMOD HYDROCHLORIDE
     Indication: RELAPSING-REMITTING MULTIPLE SCLEROSIS
     Dosage: 0.5 MG , IN REDUCED DOSE 5X WEEKLY
     Route: 048
     Dates: start: 20181218

REACTIONS (4)
  - Feeling abnormal [Unknown]
  - Product use issue [Unknown]
  - Lymphopenia [Not Recovered/Not Resolved]
  - Central nervous system lesion [Unknown]

NARRATIVE: CASE EVENT DATE: 20190110
